FAERS Safety Report 4921327-0 (Version None)
Quarter: 2006Q1

REPORT INFORMATION
  Report Type: 
  Country: None (occurrence: None)
  Receive Date: 20060224
  Receipt Date: 20060215
  Transmission Date: 20060701
  Serious: Yes (Other)
  Sender: FDA-Public Use
  Company Number: US-JNJFOC-20060204139

PATIENT
  Age: 10 Year
  Sex: Female
  Weight: 18.14 kg

DRUGS (1)
  1. CONCERTA [Suspect]
     Indication: ATTENTION DEFICIT/HYPERACTIVITY DISORDER
     Route: 048

REACTIONS (4)
  - GROWTH RETARDATION [None]
  - PSYCHOMOTOR HYPERACTIVITY [None]
  - URINARY INCONTINENCE [None]
  - WEIGHT GAIN POOR [None]
